FAERS Safety Report 13570320 (Version 1)
Quarter: 2017Q2

REPORT INFORMATION
  Report Type: Spontaneous
  Country: IT (occurrence: IT)
  Receive Date: 20170522
  Receipt Date: 20170522
  Transmission Date: 20170830
  Serious: Yes (Other)
  Sender: FDA-Public Use
  Company Number: IT-GILEAD-2017-0273388

PATIENT
  Age: 65 Year
  Sex: Male
  Weight: 41 kg

DRUGS (8)
  1. VITAMINS NOS [Concomitant]
     Active Substance: VITAMINS
     Dosage: 20 GTT, UNK
     Route: 065
  2. ZYDELIG [Suspect]
     Active Substance: IDELALISIB
     Dosage: 300 MG, QD
     Route: 048
     Dates: start: 2017
  3. ZYDELIG [Suspect]
     Active Substance: IDELALISIB
     Indication: CHRONIC LYMPHOCYTIC LEUKAEMIA
     Dosage: 300 MG, QD
     Route: 048
     Dates: start: 20160914
  4. ACICLOVIR [Concomitant]
     Active Substance: ACYCLOVIR
     Dosage: 400 MG, UNK
     Route: 065
  5. BACTRIM [Concomitant]
     Active Substance: SULFAMETHOXAZOLE\TRIMETHOPRIM
     Dosage: 2 DF, UNK
     Route: 065
  6. PANTOPRAZOL [Concomitant]
     Active Substance: PANTOPRAZOLE SODIUM
     Dosage: 40 MG, UNK
     Route: 065
  7. ZEFFIX [Concomitant]
     Active Substance: LAMIVUDINE
     Dosage: 1 DF, UNK
     Route: 065
  8. RIOPAN                             /00141701/ [Concomitant]
     Active Substance: MAGALDRATE
     Dosage: 3 DF, UNK
     Route: 048

REACTIONS (3)
  - Decreased appetite [Recovered/Resolved]
  - Neutropenia [Recovered/Resolved]
  - Weight decreased [Recovered/Resolved]

NARRATIVE: CASE EVENT DATE: 20170210
